FAERS Safety Report 8219971-0 (Version None)
Quarter: 2012Q1

REPORT INFORMATION
  Report Type: 
  Country: None (occurrence: None)
  Receive Date: 20120319
  Receipt Date: 20120307
  Transmission Date: 20120608
  Serious: Yes (Life-Threatening, Hospitalization)
  Sender: FDA-Public Use
  Company Number: JP-ROCHE-665697

PATIENT
  Sex: Male
  Weight: 53 kg

DRUGS (24)
  1. ACTEMRA [Suspect]
     Route: 041
     Dates: start: 20090113, end: 20090113
  2. PREDNISOLONE [Concomitant]
     Dosage: PREDOHAN(PREDNISOLONE)
     Route: 048
  3. ACTEMRA [Suspect]
     Indication: RHEUMATOID ARTHRITIS
     Route: 041
     Dates: start: 20080428, end: 20080428
  4. ACTEMRA [Suspect]
     Route: 041
     Dates: start: 20080623, end: 20080623
  5. ACTEMRA [Suspect]
     Route: 041
     Dates: start: 20090721, end: 20090721
  6. ACTEMRA [Suspect]
     Route: 041
     Dates: start: 20081111, end: 20081111
  7. ACTEMRA [Suspect]
     Route: 041
     Dates: start: 20090623, end: 20090623
  8. ETODOLAC [Concomitant]
     Dosage: HISRACK(ETODOLAC)
     Route: 048
     Dates: start: 20080226, end: 20090818
  9. ACTEMRA [Suspect]
     Route: 041
  10. ACTEMRA [Suspect]
     Route: 041
     Dates: start: 20090414, end: 20090414
  11. ACTEMRA [Suspect]
     Route: 041
     Dates: start: 20080722, end: 20080722
  12. ACTEMRA [Suspect]
     Route: 041
     Dates: start: 20080916, end: 20080916
  13. ACTEMRA [Suspect]
     Route: 041
     Dates: start: 20081212, end: 20081212
  14. ACTEMRA [Suspect]
     Route: 041
     Dates: start: 20090318, end: 20090318
  15. ACTEMRA [Suspect]
     Route: 041
     Dates: start: 20090513, end: 20090513
  16. ACTEMRA [Suspect]
     Route: 041
     Dates: start: 20090915, end: 20090915
  17. RHEUMATREX [Concomitant]
     Route: 048
     Dates: start: 20080226, end: 20090818
  18. ACTEMRA [Suspect]
     Route: 041
     Dates: start: 20080819, end: 20080819
  19. ISONIAZID [Concomitant]
     Route: 048
     Dates: start: 20080422, end: 20090818
  20. TROXIPIDE [Concomitant]
     Route: 048
  21. ACTEMRA [Suspect]
     Route: 041
     Dates: start: 20080526, end: 20080526
  22. ACTEMRA [Suspect]
     Route: 041
     Dates: start: 20081014, end: 20081014
  23. ACTEMRA [Suspect]
     Route: 041
     Dates: start: 20090216, end: 20090216
  24. ACTEMRA [Suspect]
     Route: 041
     Dates: start: 20090818, end: 20090818

REACTIONS (3)
  - AORTIC VALVE STENOSIS [None]
  - CARDIAC FAILURE [None]
  - CARDIAC FAILURE ACUTE [None]
